FAERS Safety Report 20125268 (Version 1)
Quarter: 2021Q4

REPORT INFORMATION
  Report Type: Spontaneous
  Country: US (occurrence: US)
  Receive Date: 20211129
  Receipt Date: 20211129
  Transmission Date: 20220303
  Serious: Yes (Other)
  Sender: FDA-Public Use
  Company Number: US-BAYER-2021A251967

PATIENT
  Age: 71 Year
  Sex: Male

DRUGS (7)
  1. BAYER LOW DOSE [Suspect]
     Active Substance: ASPIRIN
  2. FUROSEMIDE [Concomitant]
     Active Substance: FUROSEMIDE
  3. SPIRONOLACTONE [Concomitant]
     Active Substance: SPIRONOLACTONE
  4. WARFARIN [Concomitant]
     Active Substance: WARFARIN
  5. DOFETILIDE [Concomitant]
     Active Substance: DOFETILIDE
  6. ALBUTEROL SULFATE [Concomitant]
     Active Substance: ALBUTEROL SULFATE
  7. ACETAMINOPHEN [Concomitant]
     Active Substance: ACETAMINOPHEN

REACTIONS (5)
  - Pulmonary embolism [None]
  - Pulmonary infarction [None]
  - Pulmonary hypertension [None]
  - Dyspnoea [None]
  - Peripheral swelling [None]
